FAERS Safety Report 4994356-9 (Version None)
Quarter: 2006Q2

REPORT INFORMATION
  Report Type: 
  Country: None (occurrence: None)
  Receive Date: 20060503
  Receipt Date: 20060414
  Transmission Date: 20061013
  Serious: Yes (Hospitalization)
  Sender: FDA-Public Use
  Company Number: BE200604002730

PATIENT
  Age: 13 Year
  Sex: Female

DRUGS (1)
  1. HUMATROPE [Suspect]
     Indication: TURNER'S SYNDROME
     Dosage: DAILY (1/D), SUBCUTANEOUS
     Route: 058
     Dates: start: 20051201

REACTIONS (2)
  - OVARIAN CYST [None]
  - VOMITING [None]
